FAERS Safety Report 10416835 (Version 2)
Quarter: 2014Q3

REPORT INFORMATION
  Report Type: Spontaneous
  Country: US (occurrence: US)
  Receive Date: 20140828
  Receipt Date: 20140921
  Transmission Date: 20150326
  Serious: Yes (Hospitalization)
  Sender: FDA-Public Use
  Company Number: US-BRISTOL-MYERS SQUIBB COMPANY-21325840

PATIENT
  Age: 86 Year
  Sex: Female
  Weight: 44.44 kg

DRUGS (1)
  1. ELIQUIS [Suspect]
     Active Substance: APIXABAN
     Indication: CEREBROVASCULAR ACCIDENT PROPHYLAXIS
     Dosage: EXP DATE:SEP2015?TABLET
     Dates: start: 201406, end: 20140820

REACTIONS (5)
  - Pulmonary mass [Unknown]
  - Wrong technique in drug usage process [Unknown]
  - Cough [Recovering/Resolving]
  - Dyspnoea [Unknown]
  - Pyrexia [Recovering/Resolving]
